FAERS Safety Report 13967656 (Version 1)
Quarter: 2017Q3

REPORT INFORMATION
  Report Type: Spontaneous
  Country: US (occurrence: US)
  Receive Date: 20170914
  Receipt Date: 20170914
  Transmission Date: 20171128
  Serious: Yes (Life-Threatening, Hospitalization, Other)
  Sender: FDA-Public Use
  Company Number: US-SUN PHARMACEUTICAL INDUSTRIES LTD-2017US-149763

PATIENT
  Age: 34 Year
  Sex: Female

DRUGS (2)
  1. BUPRENORPHINE. [Suspect]
     Active Substance: BUPRENORPHINE
     Indication: DRUG ABUSER
     Dosage: 2 MG FOLLOWED BY ANOTHER 2MG 4 H LATER
     Route: 065
  2. BUPRENORPHINE. [Suspect]
     Active Substance: BUPRENORPHINE
     Indication: DRUG ABUSER
     Dosage: UNK
     Route: 060

REACTIONS (8)
  - Tachycardia [Recovering/Resolving]
  - Hyperhidrosis [Recovering/Resolving]
  - Tachypnoea [Recovering/Resolving]
  - Pulmonary oedema [Recovering/Resolving]
  - Condition aggravated [Recovering/Resolving]
  - Stress cardiomyopathy [Recovered/Resolved]
  - Agitation [Recovering/Resolving]
  - Condition aggravated [Unknown]
